FAERS Safety Report 5136866-X (Version None)
Quarter: 2006Q4

REPORT INFORMATION
  Report Type: 
  Country: None (occurrence: None)
  Receive Date: 20061023
  Receipt Date: 20061011
  Transmission Date: 20070319
  Serious: Yes (Hospitalization, Other)
  Sender: FDA-Public Use
  Company Number: 2006106973

PATIENT
  Age: 70 Year
  Sex: Male

DRUGS (6)
  1. ATORVASTATIN CALCIUM [Suspect]
     Indication: HYPERCHOLESTEROLAEMIA
     Dosage: 10 MG (10 MG, 1 IN 1 D), ORAL
     Route: 048
     Dates: start: 20050701
  2. METFORMIN HCL [Suspect]
     Dosage: 850 MG, ORAL
     Route: 048
     Dates: end: 20050201
  3. GLICLAZIDE (GLICLAZIDE) [Concomitant]
  4. ASPIRIN [Concomitant]
  5. METOPROLOL SUCCINATE [Concomitant]
  6. ISOSORBIDE MONONITRATE [Concomitant]

REACTIONS (17)
  - CEREBROVASCULAR ACCIDENT [None]
  - CONFUSIONAL STATE [None]
  - DEHYDRATION [None]
  - FAT ATROPHY [None]
  - FLATULENCE [None]
  - GASTROENTERITIS ROTAVIRUS [None]
  - HEART RATE DECREASED [None]
  - HEART RATE INCREASED [None]
  - HIGH DENSITY LIPOPROTEIN DECREASED [None]
  - HYPERCHOLESTEROLAEMIA [None]
  - HYPOTENSION [None]
  - INADEQUATE DIET [None]
  - INFARCTION [None]
  - MUSCLE ATROPHY [None]
  - SOMNOLENCE [None]
  - VASODILATATION [None]
  - WEIGHT DECREASED [None]
